FAERS Safety Report 14725382 (Version 1)
Quarter: 2018Q2

REPORT INFORMATION
  Report Type: Spontaneous
  Country: CA (occurrence: CA)
  Receive Date: 20180405
  Receipt Date: 20180405
  Transmission Date: 20180711
  Serious: Yes (Death, Other)
  Sender: FDA-Public Use
  Company Number: CA-TAKEDA-2018TJP009454

PATIENT
  Age: 59 Year
  Sex: Male

DRUGS (2)
  1. MLN9708 [Suspect]
     Active Substance: IXAZOMIB
     Indication: PLASMA CELL MYELOMA
     Dosage: 2.3 MG, UNK
     Route: 048
  2. DEXAMETHASONE. [Concomitant]
     Active Substance: DEXAMETHASONE
     Indication: PLASMA CELL MYELOMA
     Dosage: 20 MG, 1/WEEK
     Route: 048

REACTIONS (4)
  - Progressive multifocal leukoencephalopathy [Unknown]
  - Dysphagia [Unknown]
  - Respiratory failure [Fatal]
  - Depressed level of consciousness [Unknown]
